FAERS Safety Report 4413249-9 (Version None)
Quarter: 2004Q3

REPORT INFORMATION
  Report Type: 
  Country: None (occurrence: None)
  Receive Date: 20040802
  Receipt Date: 20040723
  Transmission Date: 20050211
  Serious: Yes (Hospitalization)
  Sender: FDA-Public Use
  Company Number: PHBS2004CH09719

PATIENT
  Age: 74 Year
  Sex: Female

DRUGS (1)
  1. LEPONEX [Suspect]
     Indication: MEDICATION ERROR
     Dosage: 100 MG, ONCE/SINGLE
     Route: 065

REACTIONS (3)
  - DEPRESSED LEVEL OF CONSCIOUSNESS [None]
  - MEDICATION ERROR [None]
  - SOMNOLENCE [None]
